FAERS Safety Report 14434361 (Version 2)
Quarter: 2018Q1

REPORT INFORMATION
  Report Type: Report from Study
  Country: GB (occurrence: GB)
  Receive Date: 20180124
  Receipt Date: 20180212
  Transmission Date: 20180509
  Serious: Yes (Death)
  Sender: FDA-Public Use
  Company Number: GB-TEVA-2018-GB-849831

PATIENT
  Age: 64 Year
  Sex: Male

DRUGS (4)
  1. ALEMTUZUMAB [Suspect]
     Active Substance: ALEMTUZUMAB
     Dosage: 1O MG DAILY FROM DAY -3 TO DAY -7
     Route: 042
  2. MELPHALAN. [Suspect]
     Active Substance: MELPHALAN
     Dosage: REDUCED INTENSITY CONDITIONING CHEMOTHERAPY
     Route: 065
  3. FLUDARABINE [Suspect]
     Active Substance: FLUDARABINE PHOSPHATE
     Dosage: REDUCED INTENSITY CONDITIONING CHEMOTHERAPY
     Route: 065
  4. ACICLOVIR [Concomitant]
     Active Substance: ACYCLOVIR
     Indication: PROPHYLAXIS
     Dosage: FOR MINIMUM OF 3 MONTHS FOLLOWING TRANSPLANT
     Route: 065

REACTIONS (2)
  - Epstein-Barr virus infection [Fatal]
  - Post transplant lymphoproliferative disorder [Fatal]
